FAERS Safety Report 9460626 (Version 2)
Quarter: 2015Q2

REPORT INFORMATION
  Report Type: Spontaneous
  Country: NL (occurrence: NL)
  Receive Date: 20130815
  Receipt Date: 20150507
  Transmission Date: 20150821
  Serious: Yes (Death, Other)
  Sender: FDA-Public Use
  Company Number: PHHY2013NL086966

PATIENT
  Age: 61 Year
  Sex: Female

DRUGS (1)
  1. THIAMAZOLE [Suspect]
     Active Substance: METHIMAZOLE
     Indication: BASEDOW^S DISEASE
     Route: 065

REACTIONS (13)
  - Dyspnoea [Unknown]
  - Malaise [Unknown]
  - Urine output decreased [Unknown]
  - Neutropenia [Fatal]
  - Blister [Unknown]
  - Crepitations [Unknown]
  - Agranulocytosis [Fatal]
  - Cardiac arrest [Fatal]
  - Erythema [Unknown]
  - Pyrexia [Fatal]
  - Hypotension [Unknown]
  - Necrosis [Unknown]
  - Peripheral swelling [Unknown]
